FAERS Safety Report 5287746-0 (Version None)
Quarter: 2007Q2

REPORT INFORMATION
  Report Type: 
  Country: None (occurrence: None)
  Receive Date: 20070402
  Receipt Date: 20070402
  Transmission Date: 20071010
  Serious: Yes (Other)
  Sender: FDA-Public Use
  Company Number: None

PATIENT
  Age: 40 Year
  Sex: Female
  Weight: 82.1011 kg

DRUGS (1)
  1. LYRICA [Suspect]
     Indication: PAIN
     Dosage: 100MG 3 DAILY PO
     Route: 048
     Dates: start: 20070228, end: 20070328

REACTIONS (3)
  - MOBILITY DECREASED [None]
  - PAIN [None]
  - WEIGHT INCREASED [None]
